FAERS Safety Report 4928746-7 (Version None)
Quarter: 2006Q1

REPORT INFORMATION
  Report Type: 
  Country: None (occurrence: None)
  Receive Date: 20060227
  Receipt Date: 20060227
  Transmission Date: 20060701
  Serious: Yes (Other)
  Sender: FDA-Public Use
  Company Number: None

PATIENT
  Age: 70 Year
  Sex: Male
  Weight: 118 kg

DRUGS (12)
  1. COLY-MYCIN M [Suspect]
     Indication: MULTIPLE-DRUG RESISTANCE
     Dosage: 120MG   Q8H   IV
     Route: 042
     Dates: start: 20050916, end: 20050918
  2. COLY-MYCIN M [Suspect]
     Indication: PSEUDOMONAS INFECTION
     Dosage: 120MG   Q8H   IV
     Route: 042
     Dates: start: 20050916, end: 20050918
  3. VANCOMYCIN [Concomitant]
  4. LINEZOLID [Concomitant]
  5. LISINOPRIL [Concomitant]
  6. ERYTHROPOETIN [Concomitant]
  7. FUROSEMIDE [Concomitant]
  8. GLIPIZIDE [Concomitant]
  9. OXYBUTININ XL [Concomitant]
  10. PYRIDOXINE HCL [Concomitant]
  11. PANTOPRAZOLE [Concomitant]
  12. METOPROLOL XL [Concomitant]

REACTIONS (2)
  - HYPOVOLAEMIA [None]
  - RENAL FAILURE [None]
